FAERS Safety Report 14227369 (Version 2)
Quarter: 2018Q1

REPORT INFORMATION
  Report Type: Spontaneous
  Country: IN (occurrence: IN)
  Receive Date: 20171127
  Receipt Date: 20180116
  Transmission Date: 20180508
  Serious: Yes (Hospitalization)
  Sender: FDA-Public Use
  Company Number: IN-PFIZER INC-2017133074

PATIENT
  Age: 65 Year
  Sex: Female

DRUGS (3)
  1. PALBACE [Suspect]
     Active Substance: PALBOCICLIB
     Indication: BREAST CANCER METASTATIC
     Dosage: 100 MG, ONCE A DAY
  2. PALBACE [Suspect]
     Active Substance: PALBOCICLIB
     Dosage: 125 MG, ONCE A DAY
     Route: 048
     Dates: start: 20161106
  3. LETROZOLE. [Concomitant]
     Active Substance: LETROZOLE
     Dosage: 2.5 MG, UNK

REACTIONS (3)
  - Hot flush [Unknown]
  - Chromaturia [Unknown]
  - Toothache [Recovered/Resolved]
